FAERS Safety Report 6546937-9 (Version None)
Quarter: 2010Q1

REPORT INFORMATION
  Report Type: 
  Country: None (occurrence: None)
  Receive Date: 20100119
  Receipt Date: 20091209
  Transmission Date: 20100710
  Serious: Yes (Other)
  Sender: FDA-Public Use
  Company Number: 58600

PATIENT
  Sex: Female

DRUGS (1)
  1. COLD + HOT PATCH, 5% MENTHOL, TARGET CORP. [Suspect]
     Indication: ANALGESIC THERAPY
     Dosage: 1 PATCH WORN FOR 5 HOURS
     Dates: start: 20091125, end: 20091126

REACTIONS (4)
  - APPLICATION SITE BURN [None]
  - BURNING SENSATION [None]
  - SCAR [None]
  - WOUND SECRETION [None]
